FAERS Safety Report 15208730 (Version 2)
Quarter: 2018Q3

REPORT INFORMATION
  Report Type: Report from Study
  Country: LB (occurrence: LB)
  Receive Date: 20180727
  Receipt Date: 20180817
  Transmission Date: 20181010
  Serious: Yes (Hospitalization)
  Sender: FDA-Public Use
  Company Number: LB-JNJFOC-20180725216

PATIENT
  Age: 72 Year
  Sex: Female
  Weight: 76 kg

DRUGS (6)
  1. IMBRUVICA [Suspect]
     Active Substance: IBRUTINIB
     Indication: CHRONIC LYMPHOCYTIC LEUKAEMIA
     Route: 048
     Dates: start: 20180628
  2. CONCOR [Concomitant]
     Active Substance: BISOPROLOL FUMARATE
     Route: 065
  3. LOSANET [Concomitant]
     Route: 065
  4. ASPICOT [Suspect]
     Active Substance: ASPIRIN
     Indication: PRODUCT USED FOR UNKNOWN INDICATION
     Route: 065
  5. IMBRUVICA [Suspect]
     Active Substance: IBRUTINIB
     Indication: CHRONIC LYMPHOCYTIC LEUKAEMIA
     Route: 048
     Dates: start: 20180716, end: 20180723
  6. IMBRUVICA [Suspect]
     Active Substance: IBRUTINIB
     Indication: CHRONIC LYMPHOCYTIC LEUKAEMIA
     Route: 048
     Dates: start: 20180724

REACTIONS (8)
  - Decreased appetite [Not Recovered/Not Resolved]
  - Dyspnoea [Recovered/Resolved]
  - Epistaxis [Recovered/Resolved]
  - Fatigue [Not Recovered/Not Resolved]
  - Haemoglobin decreased [Recovered/Resolved]
  - Rash erythematous [Recovering/Resolving]
  - Incorrect dose administered [Unknown]
  - Off label use [Unknown]

NARRATIVE: CASE EVENT DATE: 20180628
